FAERS Safety Report 12740050 (Version 2)
Quarter: 2016Q4

REPORT INFORMATION
  Report Type: Spontaneous
  Country: CN (occurrence: CN)
  Receive Date: 20160913
  Receipt Date: 20161021
  Transmission Date: 20170207
  Serious: Yes (Other)
  Sender: FDA-Public Use
  Company Number: CN-ELI_LILLY_AND_COMPANY-CN201609000888

PATIENT
  Sex: Male

DRUGS (4)
  1. HUMULIN R [Suspect]
     Active Substance: INSULIN HUMAN
     Dosage: 6 U, EACH EVENING
     Route: 058
     Dates: start: 2007
  2. HUMULIN R [Suspect]
     Active Substance: INSULIN HUMAN
     Dosage: 6 U, QD
     Route: 058
     Dates: start: 2007
  3. HUMULIN R [Suspect]
     Active Substance: INSULIN HUMAN
     Indication: DIABETES MELLITUS
     Dosage: 8 U, EACH MORNING
     Route: 058
     Dates: start: 2007
  4. INSULIN GLARGINE [Concomitant]
     Active Substance: INSULIN GLARGINE
     Dosage: 8 U, EACH EVENING

REACTIONS (1)
  - Deafness [Not Recovered/Not Resolved]
